FAERS Safety Report 4565074-6 (Version None)
Quarter: 2005Q1

REPORT INFORMATION
  Report Type: 
  Country: None (occurrence: None)
  Receive Date: 20050131
  Receipt Date: 20050119
  Transmission Date: 20050727
  Serious: Yes (Hospitalization)
  Sender: FDA-Public Use
  Company Number: FR-BRISTOL-MYERS SQUIBB COMPANY-12829362

PATIENT
  Age: 37 Year
  Sex: Male

DRUGS (11)
  1. FUNGIZONE [Suspect]
     Route: 048
  2. CORTANCYL [Suspect]
     Route: 048
  3. PROGRAF [Suspect]
  4. CELLCEPT [Suspect]
     Route: 048
     Dates: start: 20040405
  5. TARKA [Suspect]
     Route: 048
     Dates: start: 20041013, end: 20041126
  6. BACTRIM DS [Suspect]
     Route: 048
  7. PHOSPHALUGEL [Suspect]
     Route: 048
  8. NEORECORMON [Suspect]
  9. ZOLPIDEM TARTRATE [Suspect]
  10. ZELITREX [Suspect]
     Route: 048
  11. SECTRAL [Suspect]

REACTIONS (1)
  - GUILLAIN-BARRE SYNDROME [None]
